FAERS Safety Report 7971777-3 (Version None)
Quarter: 2011Q4

REPORT INFORMATION
  Report Type: 
  Country: None (occurrence: None)
  Receive Date: 20111212
  Receipt Date: 20111207
  Transmission Date: 20120403
  Serious: Yes (Other)
  Sender: FDA-Public Use
  Company Number: US-BAYER-2011-092683

PATIENT
  Sex: Female

DRUGS (1)
  1. MIRENA [Suspect]
     Indication: CONTRACEPTION
     Dosage: 20 MCG/24HR, CONT
     Route: 015
     Dates: start: 20091101, end: 20110801

REACTIONS (17)
  - MOOD SWINGS [None]
  - FUNGAL INFECTION [None]
  - MEDICAL DEVICE COMPLICATION [None]
  - EMOTIONAL DISTRESS [None]
  - DYSPAREUNIA [None]
  - SMEAR CERVIX ABNORMAL [None]
  - ERYTHEMA [None]
  - FLUID RETENTION [None]
  - MENSTRUATION IRREGULAR [None]
  - VAGINAL DISCHARGE [None]
  - DISCOMFORT [None]
  - URINARY TRACT INFECTION [None]
  - VAGINITIS BACTERIAL [None]
  - CERVIX INFLAMMATION [None]
  - LOSS OF LIBIDO [None]
  - PAIN [None]
  - CERVIX OEDEMA [None]
